FAERS Safety Report 17477655 (Version 13)
Quarter: 2021Q1

REPORT INFORMATION
  Report Type: Report from Study
  Country: US (occurrence: US)
  Receive Date: 20200228
  Receipt Date: 20210223
  Transmission Date: 20210419
  Serious: Yes (Hospitalization)
  Sender: FDA-Public Use
  Company Number: US-B.I. PHARMACEUTICALS,INC./RIDGEFIELD-2019-BI-109501

PATIENT
  Age: 77 Year
  Sex: Male

DRUGS (3)
  1. OFEV [Suspect]
     Active Substance: NINTEDANIB
  2. OFEV [Suspect]
     Active Substance: NINTEDANIB
     Indication: IDIOPATHIC PULMONARY FIBROSIS
     Dosage: 1 CAPSULE BID
     Route: 048
     Dates: start: 20190916
  3. AMIODARONE [Suspect]
     Active Substance: AMIODARONE
     Indication: ATRIAL FIBRILLATION
     Dosage: TAKING HALF

REACTIONS (29)
  - Diarrhoea [Not Recovered/Not Resolved]
  - Fatigue [Unknown]
  - Dermal cyst [Not Recovered/Not Resolved]
  - Insomnia [Unknown]
  - Influenza [Recovered/Resolved]
  - Blood pressure increased [Unknown]
  - Muscle mass [Unknown]
  - Blood pressure decreased [Unknown]
  - Cough [Unknown]
  - Orthostatic hypotension [Unknown]
  - Nausea [Recovered/Resolved]
  - Road traffic accident [Unknown]
  - Cough [Not Recovered/Not Resolved]
  - Dysphonia [Recovered/Resolved]
  - Dizziness [Not Recovered/Not Resolved]
  - Pain [Unknown]
  - Renal failure [Unknown]
  - Hypotension [Not Recovered/Not Resolved]
  - Productive cough [Recovering/Resolving]
  - Pancreatic disorder [Unknown]
  - Flatulence [Unknown]
  - Abdominal discomfort [Recovered/Resolved]
  - Respiratory symptom [Unknown]
  - Dyspnoea exertional [Unknown]
  - Influenza [Recovered/Resolved]
  - Fatigue [Recovered/Resolved]
  - Atrial fibrillation [Unknown]
  - Nasopharyngitis [Recovered/Resolved]
  - Weight decreased [Unknown]

NARRATIVE: CASE EVENT DATE: 20190920
